FAERS Safety Report 7933869-4 (Version None)
Quarter: 2011Q4

REPORT INFORMATION
  Report Type: 
  Country: None (occurrence: None)
  Receive Date: 20111122
  Receipt Date: 20111116
  Transmission Date: 20120403
  Serious: Yes (Hospitalization)
  Sender: FDA-Public Use
  Company Number: US-SANOFI-AVENTIS-2011SA075782

PATIENT
  Sex: Female
  Weight: 59 kg

DRUGS (1)
  1. LASIX [Suspect]
     Dates: start: 20111001

REACTIONS (1)
  - BLOOD PRESSURE INCREASED [None]
